FAERS Safety Report 15319645 (Version 4)
Quarter: 2018Q3

REPORT INFORMATION
  Report Type: Spontaneous
  Country: US (occurrence: US)
  Receive Date: 20180827
  Receipt Date: 20180924
  Transmission Date: 20181010
  Serious: Yes (Hospitalization, Other)
  Sender: FDA-Public Use
  Company Number: US-AEGERION PHARMACEUTICAL, INC-AEGR003932

PATIENT
  Sex: Female

DRUGS (2)
  1. MYALEPT [Suspect]
     Active Substance: METRELEPTIN
     Indication: LIPODYSTROPHY ACQUIRED
     Dosage: 5 MG, QD
     Route: 058
     Dates: start: 201806
  2. MYALEPT [Suspect]
     Active Substance: METRELEPTIN
     Dosage: 7.5 MG, QD
     Route: 058
     Dates: start: 2018

REACTIONS (5)
  - Pneumonia [Unknown]
  - Therapy cessation [Unknown]
  - Inflammation of wound [Unknown]
  - Osteomyelitis [Unknown]
  - Arthritis bacterial [Unknown]

NARRATIVE: CASE EVENT DATE: 2018
